FAERS Safety Report 20138205 (Version 1)
Quarter: 2021Q4

REPORT INFORMATION
  Report Type: Spontaneous
  Country: DE (occurrence: DE)
  Receive Date: 20211202
  Receipt Date: 20211202
  Transmission Date: 20220303
  Serious: Yes (Hospitalization, Other)
  Sender: FDA-Public Use
  Company Number: DE-AMGEN-DEUNI2019170045

PATIENT
  Age: 60 Year
  Sex: Male
  Weight: 86 kg

DRUGS (21)
  1. LEUCOVORIN [Suspect]
     Active Substance: LEUCOVORIN
     Indication: Colorectal cancer metastatic
     Dosage: 812 MILLIGRAM, UNK
     Route: 065
     Dates: start: 20190718
  2. LEUCOVORIN [Suspect]
     Active Substance: LEUCOVORIN
     Dosage: 650 MILLIGRAM, UNK
     Route: 065
     Dates: start: 20191002
  3. LEUCOVORIN [Suspect]
     Active Substance: LEUCOVORIN
     Dosage: 650 MILLIGRAM
     Route: 065
     Dates: start: 20191024
  4. IRINOTECAN [Suspect]
     Active Substance: IRINOTECAN
     Indication: Colorectal cancer metastatic
     Dosage: 365 MILLIGRAM, UNK
     Route: 065
     Dates: start: 20190718
  5. IRINOTECAN [Suspect]
     Active Substance: IRINOTECAN
     Dosage: 356 MILLIGRAM, UNK
     Route: 065
     Dates: start: 20190808
  6. IRINOTECAN [Suspect]
     Active Substance: IRINOTECAN
     Dosage: 365 MILLIGRAM, UNK
     Route: 065
     Dates: start: 20190822
  7. IRINOTECAN [Suspect]
     Active Substance: IRINOTECAN
     Dosage: 292 MILLIGRAM, UNK
     Route: 065
     Dates: start: 20191002
  8. IRINOTECAN [Suspect]
     Active Substance: IRINOTECAN
     Dosage: 292 MILLIGRAM
     Route: 065
     Dates: start: 20191024
  9. FLUOROURACIL [Suspect]
     Active Substance: FLUOROURACIL
     Indication: Colorectal cancer metastatic
     Dosage: 812 MILLIGRAM, UNK
     Route: 040
     Dates: start: 20190718
  10. FLUOROURACIL [Suspect]
     Active Substance: FLUOROURACIL
     Dosage: 4872 MILLIGRAM, UNK
     Route: 042
     Dates: start: 20190718
  11. FLUOROURACIL [Suspect]
     Active Substance: FLUOROURACIL
     Dosage: 650 MILLIGRAM, UNK
     Route: 040
     Dates: start: 20191002
  12. FLUOROURACIL [Suspect]
     Active Substance: FLUOROURACIL
     Dosage: 3897 MILLIGRAM, UNK
     Route: 042
     Dates: start: 20191002
  13. FLUOROURACIL [Suspect]
     Active Substance: FLUOROURACIL
     Dosage: 3897 MILLIGRAM
     Route: 042
     Dates: start: 20191024
  14. FLUOROURACIL [Suspect]
     Active Substance: FLUOROURACIL
     Dosage: 650 MILLIGRAM
     Route: 040
     Dates: start: 20191024
  15. VECTIBIX [Suspect]
     Active Substance: PANITUMUMAB
     Indication: Colorectal cancer metastatic
     Dosage: 516 MILLIGRAM, UNK
     Route: 042
     Dates: start: 20190718
  16. BUTYLSCOPOLAMINE BROMIDE [Concomitant]
     Active Substance: BUTYLSCOPOLAMINE BROMIDE
     Indication: Abdominal pain
     Dosage: 10 MILLIGRAM, AS NECESSARY
     Route: 048
     Dates: start: 20190506
  17. IBUPROFEN [Concomitant]
     Active Substance: IBUPROFEN
     Indication: Pain
     Dosage: 600 MILLIGRAM, AS NECESSARY
     Route: 048
     Dates: start: 20190506
  18. SODIUM PICOSULFATE [Concomitant]
     Active Substance: SODIUM PICOSULFATE
     Indication: Constipation
     Dosage: 10 UNK, AS NECESSARY
     Route: 048
     Dates: start: 20190506
  19. HYDROMORPHON RATIOPHARM [Concomitant]
     Indication: Pain
     Dosage: 12 MILLIGRAM, ONCE A DAY (6 MILLIGRAM, BID)
     Route: 048
     Dates: start: 20190701
  20. PANTOPRAZOLE [Concomitant]
     Active Substance: PANTOPRAZOLE
     Indication: Gastritis
     Dosage: 40 MILLIGRAM, ONCE A DAY
     Route: 048
     Dates: start: 20190424
  21. HYDROMORPHONE [Concomitant]
     Active Substance: HYDROMORPHONE
     Indication: Pain
     Dosage: 1.3 MILLIGRAM, AS NECESSARY
     Route: 048
     Dates: start: 20190701

REACTIONS (1)
  - Diabetes mellitus [Recovered/Resolved]

NARRATIVE: CASE EVENT DATE: 20191009
